FAERS Safety Report 6197176-5 (Version None)
Quarter: 2009Q2

REPORT INFORMATION
  Report Type: 
  Country: None (occurrence: None)
  Receive Date: 20090520
  Receipt Date: 20090513
  Transmission Date: 20091009
  Serious: Yes (Other)
  Sender: FDA-Public Use
  Company Number: GB-ALLERGAN-0905561US

PATIENT
  Age: 55 Year
  Sex: Female

DRUGS (2)
  1. VISTABEL [Suspect]
     Indication: SKIN WRINKLING
     Dosage: 30 UNITS, SINGLE
     Route: 030
     Dates: start: 20090319, end: 20090319
  2. VISTABEL [Suspect]

REACTIONS (8)
  - CONTUSION [None]
  - DRUG INEFFECTIVE [None]
  - DYSKINESIA [None]
  - EYE SWELLING [None]
  - FACIAL PARESIS [None]
  - HYPOAESTHESIA ORAL [None]
  - INJECTION SITE PAIN [None]
  - PARAESTHESIA [None]
